FAERS Safety Report 15843849 (Version 2)
Quarter: 2019Q1

REPORT INFORMATION
  Report Type: Spontaneous
  Country: US (occurrence: US)
  Receive Date: 20190118
  Receipt Date: 20190205
  Transmission Date: 20190417
  Serious: No
  Sender: FDA-Public Use
  Company Number: US-MATRIXX INITIATIVES, INC.-2061460

PATIENT
  Age: 59 Year
  Sex: Male
  Weight: 88.64 kg

DRUGS (2)
  1. ZICAM COLD REMEDY RAPIDMELTS [Suspect]
     Active Substance: HOMEOPATHICS\ZINC ACETATE ANHYDROUS\ZINC GLUCONATE
     Indication: NASOPHARYNGITIS
     Route: 048
     Dates: start: 20190112, end: 20190114
  2. UNSPECIFIED SLEEP AID [Concomitant]

REACTIONS (2)
  - Anosmia [Recovered/Resolved]
  - Dysgeusia [Recovered/Resolved]
